FAERS Safety Report 18787030 (Version 1)
Quarter: 2021Q1

REPORT INFORMATION
  Report Type: Spontaneous
  Country: DE (occurrence: DE)
  Receive Date: 20210126
  Receipt Date: 20210126
  Transmission Date: 20210419
  Serious: Yes (Disabling)
  Sender: FDA-Public Use
  Company Number: DE-DRREDDYS-GER/GER/21/0131162

PATIENT
  Age: 42 Year
  Sex: Male
  Weight: 75 kg

DRUGS (1)
  1. CIPROFLOXACIN. [Suspect]
     Active Substance: CIPROFLOXACIN
     Indication: URINARY TRACT INFECTION
     Dosage: 1 TABLETTE PRO TAG
     Route: 048
     Dates: start: 20130922, end: 20130930

REACTIONS (6)
  - Impaired quality of life [Recovered/Resolved]
  - Tendon pain [Recovered/Resolved]
  - Mobility decreased [Recovered/Resolved]
  - Tendonitis [Recovered/Resolved]
  - Impaired work ability [Recovered/Resolved]
  - Adverse reaction [Recovered/Resolved]

NARRATIVE: CASE EVENT DATE: 2013
